FAERS Safety Report 6544133-2 (Version None)
Quarter: 2010Q1

REPORT INFORMATION
  Report Type: 
  Country: None (occurrence: None)
  Receive Date: 20100120
  Receipt Date: 20100112
  Transmission Date: 20100710
  Serious: Yes (Other)
  Sender: FDA-Public Use
  Company Number: TR-ABBOTT-10P-161-0618601-00

PATIENT
  Age: 18 Year
  Sex: Female
  Weight: 68 kg

DRUGS (2)
  1. REDUCTIL 15MG [Suspect]
     Indication: OBESITY
     Route: 048
     Dates: start: 20090101, end: 20090101
  2. REDUCTIL 15MG [Suspect]
     Route: 048
     Dates: start: 20091211, end: 20100112

REACTIONS (1)
  - RECTAL HAEMORRHAGE [None]
